FAERS Safety Report 9476401 (Version 5)
Quarter: 2013Q4

REPORT INFORMATION
  Report Type: Spontaneous
  Country: US (occurrence: US)
  Receive Date: 20130826
  Receipt Date: 20131015
  Transmission Date: 20140711
  Serious: Yes (Other)
  Sender: FDA-Public Use
  Company Number: US-SANOFI-AVENTIS-2013SA041134

PATIENT
  Age: 45 Year
  Sex: Female

DRUGS (5)
  1. AUBAGIO [Suspect]
     Indication: MULTIPLE SCLEROSIS
     Route: 048
     Dates: start: 20120115
  2. AUBAGIO [Suspect]
     Indication: MULTIPLE SCLEROSIS
     Route: 048
     Dates: start: 20130127, end: 20130814
  3. ZOLOFT [Concomitant]
  4. VITAMIN D [Concomitant]
  5. MVI [Concomitant]

REACTIONS (18)
  - Loss of consciousness [Recovering/Resolving]
  - Disorientation [Recovering/Resolving]
  - Dizziness [Recovering/Resolving]
  - Multiple sclerosis relapse [Recovering/Resolving]
  - Drug ineffective [Unknown]
  - Tremor [Recovering/Resolving]
  - Amnesia [Recovering/Resolving]
  - Pain [Recovering/Resolving]
  - Fatigue [Recovering/Resolving]
  - Hypoaesthesia [Recovering/Resolving]
  - Muscular weakness [Recovering/Resolving]
  - Feeling abnormal [Recovering/Resolving]
  - Somnolence [Recovering/Resolving]
  - Malaise [Recovering/Resolving]
  - Weight decreased [Recovering/Resolving]
  - Diarrhoea [Recovering/Resolving]
  - Blood pressure increased [Recovering/Resolving]
  - Drug dose omission [Unknown]
